FAERS Safety Report 11822940 (Version 1)
Quarter: 2015Q4

REPORT INFORMATION
  Report Type: Spontaneous
  Country: JP (occurrence: JP)
  Receive Date: 20151210
  Receipt Date: 20151210
  Transmission Date: 20160305
  Serious: Yes (Hospitalization)
  Sender: FDA-Public Use
  Company Number: JP-SUCAMPO PHARMACEUTICALS, INC.-SPI201501297

PATIENT
  Age: 16 Year
  Sex: Male

DRUGS (4)
  1. AMITIZA [Suspect]
     Active Substance: LUBIPROSTONE
     Dosage: UNK
     Route: 048
     Dates: start: 20151009, end: 20151120
  2. SENNARIDE [Suspect]
     Active Substance: SENNOSIDES A AND B
     Dosage: UNK
     Route: 048
     Dates: start: 20151016, end: 20151120
  3. NAUZELIN [Suspect]
     Active Substance: DOMPERIDONE
     Dosage: UNK
     Dates: start: 20151103, end: 20151120
  4. VEMAS [Suspect]
     Active Substance: CASANTHRANOL\DOCUSATE SODIUM
     Dosage: UNK
     Route: 048
     Dates: start: 20151016, end: 20151120

REACTIONS (2)
  - Neutropenia [Recovered/Resolved]
  - Off label use [Unknown]

NARRATIVE: CASE EVENT DATE: 20151109
